FAERS Safety Report 9352930 (Version 1)
Quarter: 2013Q2

REPORT INFORMATION
  Report Type: Spontaneous
  Country: US (occurrence: US)
  Receive Date: 20130618
  Receipt Date: 20130618
  Transmission Date: 20140414
  Serious: Yes (Other)
  Sender: FDA-Public Use
  Company Number: US-SANOFI-AVENTIS-2013SA012212

PATIENT
  Age: 36 Year
  Sex: Female
  Weight: 79.37 kg

DRUGS (1)
  1. CLOMID [Suspect]
     Indication: OVULATION INDUCTION
     Route: 048
     Dates: start: 20130129, end: 20130202

REACTIONS (2)
  - Abortion spontaneous [Recovered/Resolved]
  - Exposure during pregnancy [Recovered/Resolved]
